FAERS Safety Report 9173355 (Version 1)
Quarter: 2013Q1

REPORT INFORMATION
  Report Type: Spontaneous
  Country: IT (occurrence: None)
  Receive Date: 20130314
  Receipt Date: 20130314
  Transmission Date: 20140127
  Serious: Yes (Hospitalization)
  Sender: FDA-Public Use
  Company Number: AUR-APL-2013-02132

PATIENT
  Age: 40 Year
  Sex: Female

DRUGS (7)
  1. CITALOPRAM (CITALOPRAM) [Suspect]
     Dosage: (10 DOSAGE FORMS, TOTAL), ORAL
     Route: 048
     Dates: start: 20120229, end: 20120229
  2. CITALOPRAM (CITALOPRAM) [Suspect]
     Dosage: (10 DOSAGE FORMS, TOTAL), ORAL
     Route: 048
     Dates: start: 20120229, end: 20120229
  3. CITALOPRAM (CITALOPRAM) [Suspect]
     Dosage: (10 DOSAGE FORMS, TOTAL), ORAL
     Route: 048
     Dates: start: 20120229, end: 20120229
  4. CITALOPRAM (CITALOPRAM) [Suspect]
     Dosage: (10 DOSAGE FORMS, TOTAL), ORAL
     Route: 048
     Dates: start: 20120229, end: 20120229
  5. TALOFEN [Suspect]
  6. EN [Suspect]
  7. DEPAKIN [Suspect]
     Dosage: 10 DOSAGE FORMS TOTAL ORAL
     Route: 048

REACTIONS (6)
  - Sopor [None]
  - Respiratory failure [None]
  - Pneumonia aspiration [None]
  - Hypotension [None]
  - Electrocardiogram QT prolonged [None]
  - Intentional overdose [None]
